FAERS Safety Report 9541407 (Version 1)
Quarter: 2013Q3

REPORT INFORMATION
  Report Type: Spontaneous
  Country: US (occurrence: None)
  Receive Date: 20130919
  Receipt Date: 20130919
  Transmission Date: 20140515
  Serious: Yes (Life-Threatening)
  Sender: FDA-Public Use
  Company Number: None

PATIENT
  Age: 73 Year
  Sex: Female
  Weight: 44.91 kg

DRUGS (2)
  1. TRAZODONE [Suspect]
     Dosage: 1/DAY
  2. PRINIVIL [Suspect]

REACTIONS (3)
  - Hallucination [None]
  - Swollen tongue [None]
  - Asphyxia [None]
